FAERS Safety Report 13567847 (Version 1)
Quarter: 2017Q2

REPORT INFORMATION
  Report Type: Spontaneous
  Country: GB (occurrence: None)
  Receive Date: 20170519
  Receipt Date: 20170519
  Transmission Date: 20170830
  Serious: Yes (Hospitalization, Other)
  Sender: FDA-Public Use
  Company Number: GB2017K3255SPO

PATIENT
  Sex: Female

DRUGS (1)
  1. LANSOPRAZOLE GENERIC (LANSOPRAZOLE) UNKNOWN [Suspect]
     Active Substance: LANSOPRAZOLE
     Route: 048

REACTIONS (7)
  - Feeling abnormal [None]
  - Reaction to colouring [None]
  - Drug hypersensitivity [None]
  - Drug intolerance [None]
  - Product use complaint [None]
  - Wrong technique in product usage process [None]
  - Malaise [None]
